FAERS Safety Report 13143059 (Version 1)
Quarter: 2017Q1

REPORT INFORMATION
  Report Type: Report from Study
  Country: CO (occurrence: CO)
  Receive Date: 20170123
  Receipt Date: 20170123
  Transmission Date: 20170428
  Serious: Yes (Hospitalization)
  Sender: FDA-Public Use
  Company Number: CO-AMGEN-COLSL2017009570

PATIENT
  Age: 68 Year
  Sex: Female

DRUGS (1)
  1. VECTIBIX [Suspect]
     Active Substance: PANITUMUMAB
     Indication: COLORECTAL CANCER METASTATIC
     Dosage: 475 MG, Q2WK
     Route: 042

REACTIONS (4)
  - Hypersensitivity [Unknown]
  - Facial paralysis [Unknown]
  - Xerosis [Not Recovered/Not Resolved]
  - Monoplegia [Unknown]

NARRATIVE: CASE EVENT DATE: 20161201
